FAERS Safety Report 13834234 (Version 1)
Quarter: 2017Q3

REPORT INFORMATION
  Report Type: Spontaneous
  Country: US (occurrence: US)
  Receive Date: 20170804
  Receipt Date: 20170804
  Transmission Date: 20171127
  Serious: No
  Sender: FDA-Public Use
  Company Number: None

PATIENT
  Age: 74 Year
  Sex: Female
  Weight: 52.21 kg

DRUGS (7)
  1. DEPAKOTE ER [Suspect]
     Active Substance: DIVALPROEX SODIUM
     Indication: SEIZURE
     Dosage: AT BEDTIME, BY MOUTH
     Route: 048
     Dates: start: 20161228, end: 20170105
  2. RANITIDINE. [Concomitant]
     Active Substance: RANITIDINE
  3. METAPROLOL [Concomitant]
     Active Substance: METOPROLOL
  4. LISINOPRIL. [Concomitant]
     Active Substance: LISINOPRIL
  5. ASPIRIN. [Concomitant]
     Active Substance: ASPIRIN
  6. LORAZEPAM. [Concomitant]
     Active Substance: LORAZEPAM
  7. FLUTECASONE [Concomitant]

REACTIONS (11)
  - Nausea [None]
  - Depression [None]
  - Cough [None]
  - Nervousness [None]
  - Vision blurred [None]
  - Muscle disorder [None]
  - Fatigue [None]
  - Weight decreased [None]
  - Diarrhoea [None]
  - Somnolence [None]
  - Dizziness [None]

NARRATIVE: CASE EVENT DATE: 20161228
